FAERS Safety Report 15819000 (Version 1)
Quarter: 2019Q1

REPORT INFORMATION
  Report Type: Other
  Country: BE (occurrence: BE)
  Receive Date: 20190114
  Receipt Date: 20190114
  Transmission Date: 20190417
  Serious: Yes (Other)
  Sender: FDA-Public Use
  Company Number: BE-CELLTRION INC.-2019BE017587

PATIENT

DRUGS (3)
  1. INFLIXIMAB (UNKNOWN) [Suspect]
     Active Substance: INFLIXIMAB
     Indication: CROHN^S DISEASE
     Dosage: 10 MG/KG, EVERY 4 WEEKS
     Route: 042
     Dates: start: 201804, end: 201805
  2. INFLIXIMAB (UNKNOWN) [Suspect]
     Active Substance: INFLIXIMAB
     Indication: CROHN^S DISEASE
     Dosage: 5 MG/KG, EVERY 4 WEEKS
     Route: 042
     Dates: start: 2018
  3. INFLIXIMAB (UNKNOWN) [Suspect]
     Active Substance: INFLIXIMAB
     Indication: CROHN^S DISEASE
     Dosage: 5 MG/KG, EVERY 2 MONTHS
     Route: 042
     Dates: start: 201708

REACTIONS (5)
  - Off label use [Unknown]
  - Crohn^s disease [Not Recovered/Not Resolved]
  - Product use issue [Unknown]
  - Drug specific antibody present [Unknown]
  - Drug ineffective [Unknown]

NARRATIVE: CASE EVENT DATE: 2018
